FAERS Safety Report 13835494 (Version 1)
Quarter: 2017Q3

REPORT INFORMATION
  Report Type: Spontaneous
  Country: US (occurrence: US)
  Receive Date: 20170804
  Receipt Date: 20170804
  Transmission Date: 20171127
  Serious: Yes (Other)
  Sender: FDA-Public Use
  Company Number: None

PATIENT
  Sex: Male
  Weight: 19.8 kg

DRUGS (2)
  1. CHILDREN^S VITAMIN [Concomitant]
  2. CHILDRENS XYZAL ALLERGY 24HR [Suspect]
     Active Substance: LEVOCETIRIZINE DIHYDROCHLORIDE
     Indication: MULTIPLE ALLERGIES
     Dosage: ?          QUANTITY:5 MILLILITERS;?
     Route: 048
     Dates: start: 20170719, end: 20170726

REACTIONS (1)
  - Seizure [None]

NARRATIVE: CASE EVENT DATE: 20170727
